FAERS Safety Report 25756115 (Version 1)
Quarter: 2025Q3

REPORT INFORMATION
  Report Type: Spontaneous
  Country: US (occurrence: None)
  Receive Date: 20250902
  Receipt Date: 20250902
  Transmission Date: 20251020
  Serious: Yes (Hospitalization, Disabling, Other)
  Sender: FDA-CTU
  Company Number: None

PATIENT
  Age: 35 Year
  Weight: 51.3 kg

DRUGS (1)
  1. AZITHROMYCIN [Suspect]
     Active Substance: AZITHROMYCIN
     Indication: Rosacea
     Dates: start: 20250501, end: 20250727

REACTIONS (10)
  - Drug reaction with eosinophilia and systemic symptoms [None]
  - Immune system disorder [None]
  - Urticaria [None]
  - Skin burning sensation [None]
  - Urticaria [None]
  - Skin depigmentation [None]
  - Weight decreased [None]
  - General physical health deterioration [None]
  - Mental impairment [None]
  - Impaired work ability [None]

NARRATIVE: CASE EVENT DATE: 20250727
